FAERS Safety Report 8359553-3 (Version None)
Quarter: 2012Q2

REPORT INFORMATION
  Report Type: 
  Country: None (occurrence: None)
  Receive Date: 20120515
  Receipt Date: 20120507
  Transmission Date: 20120825
  Serious: Yes (Hospitalization, Other)
  Sender: FDA-Public Use
  Company Number: GR-JNJFOC-20120407640

PATIENT
  Age: 38 Year
  Sex: Male
  Weight: 88 kg

DRUGS (2)
  1. STELARA [Suspect]
     Indication: PSORIASIS
     Route: 058
     Dates: start: 20120411
  2. STELARA [Suspect]
     Dosage: AT THE TIME OF THE EVENT, THE PATIENT HAD RECEIVED A TOTAL OF 5 INJECTIONS
     Route: 058
     Dates: start: 20110608

REACTIONS (1)
  - MYOCARDIAL INFARCTION [None]
